FAERS Safety Report 5299097-9 (Version None)
Quarter: 2007Q2

REPORT INFORMATION
  Report Type: 
  Country: None (occurrence: None)
  Receive Date: 20070417
  Receipt Date: 20070413
  Transmission Date: 20071010
  Serious: Yes (Hospitalization)
  Sender: FDA-Public Use
  Company Number: JP-JPN-A200700903

PATIENT
  Age: 24 Year
  Sex: Female
  Weight: 49 kg

DRUGS (7)
  1. PAXIL [Suspect]
     Indication: DEPRESSION
     Route: 048
     Dates: start: 20061222
  2. SOLANAX [Suspect]
     Indication: NEUROSIS
     Dosage: .4MG SEE DOSAGE TEXT
     Route: 048
     Dates: start: 20070112, end: 20070116
  3. DESYREL [Concomitant]
     Indication: DEPRESSION
     Dosage: 50MG PER DAY
     Route: 048
     Dates: start: 20070106
  4. MYSLEE [Concomitant]
     Indication: INSOMNIA
     Dosage: 10MG PER DAY
     Route: 048
     Dates: start: 20061222
  5. SEDIEL [Concomitant]
     Indication: NEUROSIS
     Dosage: 30MG PER DAY
     Route: 048
     Dates: start: 20070124
  6. GASMOTIN [Concomitant]
     Dosage: 15MG PER DAY
     Route: 048
     Dates: start: 20070106
  7. DOGMATYL [Concomitant]
     Indication: DEPRESSION
     Dosage: 150MG PER DAY
     Route: 048
     Dates: start: 20061222, end: 20070105

REACTIONS (8)
  - ANXIETY [None]
  - HYPOMANIA [None]
  - IMPATIENCE [None]
  - IMPULSIVE BEHAVIOUR [None]
  - INSOMNIA [None]
  - IRRITABILITY [None]
  - PSYCHOMOTOR HYPERACTIVITY [None]
  - TENSION [None]
